FAERS Safety Report 5459415-5 (Version None)
Quarter: 2007Q3

REPORT INFORMATION
  Report Type: 
  Country: None (occurrence: None)
  Receive Date: 20070919
  Receipt Date: 20070913
  Transmission Date: 20080115
  Serious: Yes (Hospitalization)
  Sender: FDA-Public Use
  Company Number: US-JNJFOC-20070903096

PATIENT
  Age: 50 Year
  Sex: Male

DRUGS (3)
  1. INVEGA [Suspect]
     Route: 048
  2. INVEGA [Suspect]
     Indication: PSYCHOTIC DISORDER
     Route: 048
  3. CLOZARIL [Concomitant]
     Indication: PSYCHOTIC DISORDER
     Route: 048

REACTIONS (1)
  - CONVULSION [None]
